FAERS Safety Report 23202672 (Version 1)
Quarter: 2023Q4

REPORT INFORMATION
  Report Type: Spontaneous
  Country: US (occurrence: US)
  Receive Date: 20231120
  Receipt Date: 20231120
  Transmission Date: 20240110
  Serious: No
  Sender: FDA-Public Use
  Company Number: US-AMGEN-USASP2023206240

PATIENT
  Age: 90 Year
  Sex: Female

DRUGS (1)
  1. REPATHA [Suspect]
     Active Substance: EVOLOCUMAB
     Indication: Arteriosclerosis
     Dosage: UNK
     Route: 065
     Dates: start: 2023, end: 202308

REACTIONS (5)
  - Pain [Recovering/Resolving]
  - Myalgia [Recovering/Resolving]
  - Arthralgia [Recovering/Resolving]
  - Gait inability [Recovering/Resolving]
  - Asthenia [Recovering/Resolving]
